FAERS Safety Report 5586842-8 (Version None)
Quarter: 2008Q1

REPORT INFORMATION
  Report Type: 
  Country: None (occurrence: None)
  Receive Date: 20080108
  Receipt Date: 20080108
  Transmission Date: 20080703
  Serious: Yes (Hospitalization)
  Sender: FDA-Public Use
  Company Number: None

PATIENT
  Age: 62 Year
  Sex: Male
  Weight: 70.7611 kg

DRUGS (1)
  1. VALPROIC ACID [Suspect]
     Indication: BIPOLAR DISORDER
     Dosage: 2500MG  DAILY  PO  (DURATION: 1-2 YEARS)
     Route: 048

REACTIONS (4)
  - ABNORMAL BEHAVIOUR [None]
  - ATAXIA [None]
  - MENTAL STATUS CHANGES [None]
  - WEIGHT DECREASED [None]
